FAERS Safety Report 19559691 (Version 1)
Quarter: 2021Q3

REPORT INFORMATION
  Report Type: Spontaneous
  Country: US (occurrence: US)
  Receive Date: 20210715
  Receipt Date: 20210715
  Transmission Date: 20211014
  Serious: Yes (Death, Hospitalization, Other)
  Sender: FDA-Public Use
  Company Number: US-PFIZER INC-9704893

PATIENT
  Age: 53 Year
  Sex: Male

DRUGS (13)
  1. COUMADIN [Interacting]
     Active Substance: WARFARIN SODIUM
     Indication: MITRAL VALVE DISEASE
     Dosage: 5 MG FOR 6 DAYS PER WEEK AND 2.5 MG FOR ONE DAY PER WEEK FOR SEVERAL YEARS
     Route: 048
     Dates: end: 19970202
  2. PEPCID [Concomitant]
     Active Substance: FAMOTIDINE
     Route: 048
  3. COUMADIN [Interacting]
     Active Substance: WARFARIN SODIUM
     Dosage: 5 MG FOR 6 DAYS PER WEEK AND 2.5 MG FOR ONE DAY PER WEEK FOR SEVERAL YEARS
     Route: 048
     Dates: end: 19970202
  4. PREDNISONE. [Concomitant]
     Active Substance: PREDNISONE
     Route: 048
  5. DILANTIN [Concomitant]
     Active Substance: PHENYTOIN
     Route: 048
  6. PROPOXYPHENE/ACETAMINOPHEN [Concomitant]
     Active Substance: ACETAMINOPHEN\PROPOXYPHENE
     Route: 048
  7. DIGOXIN. [Concomitant]
     Active Substance: DIGOXIN
     Route: 048
  8. AZITHROMYCIN ANHYDROUS. [Suspect]
     Active Substance: AZITHROMYCIN ANHYDROUS
     Indication: RESPIRATORY TRACT INFECTION
     Dosage: UNK
     Route: 048
     Dates: start: 19970126, end: 19970130
  9. PLAQUENIL [Concomitant]
     Active Substance: HYDROXYCHLOROQUINE SULFATE
     Route: 048
  10. PHENYTOIN. [Concomitant]
     Active Substance: PHENYTOIN
  11. LASIX [Concomitant]
     Active Substance: FUROSEMIDE
     Route: 048
  12. POTASSIUM SUPPLEMENT [Concomitant]
     Active Substance: POTASSIUM
     Route: 048
  13. ASPIRIN. [Concomitant]
     Active Substance: ASPIRIN
     Route: 048

REACTIONS (6)
  - Cardiac arrest [Fatal]
  - International normalised ratio increased [Recovering/Resolving]
  - Cardioactive drug level increased [Unknown]
  - Multiple organ dysfunction syndrome [Fatal]
  - Sepsis [Unknown]
  - Drug interaction [Unknown]

NARRATIVE: CASE EVENT DATE: 19970202
